FAERS Safety Report 12239355 (Version 2)
Quarter: 2016Q2

REPORT INFORMATION
  Report Type: Report from Study
  Country: CA (occurrence: CA)
  Receive Date: 20160405
  Receipt Date: 20160420
  Transmission Date: 20160815
  Serious: Yes (Hospitalization)
  Sender: FDA-Public Use
  Company Number: CA-ABBVIE-16K-028-1579660-00

PATIENT
  Age: 12 Year
  Sex: Male

DRUGS (2)
  1. HUMIRA [Suspect]
     Active Substance: ADALIMUMAB
     Route: 058
     Dates: start: 20160229
  2. HUMIRA [Suspect]
     Active Substance: ADALIMUMAB
     Indication: CROHN^S DISEASE
     Route: 058
     Dates: start: 20160228, end: 20160228

REACTIONS (10)
  - Crying [Not Recovered/Not Resolved]
  - Depression [Not Recovered/Not Resolved]
  - Hyperventilation [Not Recovered/Not Resolved]
  - Panic attack [Unknown]
  - Hyperventilation [Recovered/Resolved]
  - Fear [Unknown]
  - Anxiety [Recovered/Resolved]
  - Anxiety [Recovering/Resolving]
  - Dyspnoea [Not Recovered/Not Resolved]
  - Crying [Recovered/Resolved]

NARRATIVE: CASE EVENT DATE: 20160228
